FAERS Safety Report 9309869 (Version 3)
Quarter: 2014Q1

REPORT INFORMATION
  Report Type: Report from Study
  Country: JP (occurrence: JP)
  Receive Date: 20130526
  Receipt Date: 20140113
  Transmission Date: 20141002
  Serious: Yes (Hospitalization, Disabling)
  Sender: FDA-Public Use
  Company Number: JP-ALLERGAN-1307411US

PATIENT
  Age: 85 Year
  Sex: Male

DRUGS (5)
  1. BIMATOPROST 0.03% SOL-EYE (9106X) [Suspect]
     Indication: NORMAL TENSION GLAUCOMA
     Dosage: 1 GTT, QD
     Route: 047
     Dates: start: 20110318, end: 20121018
  2. BIMATOPROST 0.03% SOL-EYE (9106X) [Suspect]
     Dosage: 2 GTT, QD
     Route: 047
     Dates: start: 20121219, end: 20130205
  3. TIMOPTOL XE [Concomitant]
     Dosage: UNK
     Route: 047
     Dates: end: 20110930
  4. AZOPT [Concomitant]
     Dosage: UNK
     Route: 047
     Dates: end: 20110930
  5. COSOPT [Concomitant]
     Dosage: UNK
     Route: 047
     Dates: start: 20110930

REACTIONS (3)
  - Intraocular pressure increased [Not Recovered/Not Resolved]
  - Cerebral infarction [Recovered/Resolved]
  - Visual field defect [Not Recovered/Not Resolved]
